FAERS Safety Report 9493568 (Version 3)
Quarter: 2013Q3

REPORT INFORMATION
  Report Type: Spontaneous
  Country: US (occurrence: US)
  Receive Date: 20130902
  Receipt Date: 20130920
  Transmission Date: 20140515
  Serious: No
  Sender: FDA-Public Use
  Company Number: US-PFIZER INC-2013219023

PATIENT
  Age: 53 Year
  Sex: Female

DRUGS (11)
  1. LYRICA [Suspect]
     Indication: FIBROMYALGIA
     Dosage: UNK
     Dates: start: 2013
  2. LYRICA [Suspect]
     Dosage: 75 MG, 1X/DAY
     Route: 048
  3. LYRICA [Suspect]
     Dosage: 75 MG, 2X/DAY
     Route: 048
     Dates: start: 201302
  4. NEURONTIN [Suspect]
     Dosage: UNK
     Dates: start: 2013
  5. KLONOPIN [Concomitant]
     Dosage: UNK
  6. ATENOLOL [Concomitant]
     Dosage: UNK
  7. PROZAC [Concomitant]
     Dosage: UNK
  8. MOBIC [Concomitant]
     Dosage: UNK
  9. ACIPHEX [Concomitant]
     Dosage: UNK
  10. ADVAIR [Concomitant]
     Dosage: UNK
  11. LIDODERM [Concomitant]
     Dosage: UNK

REACTIONS (4)
  - Incorrect dose administered [Unknown]
  - Drug dispensing error [Unknown]
  - Drug ineffective [Unknown]
  - Drug effect incomplete [Unknown]
